FAERS Safety Report 7041679-8 (Version None)
Quarter: 2010Q4

REPORT INFORMATION
  Report Type: 
  Country: None (occurrence: None)
  Receive Date: 20101013
  Receipt Date: 20100923
  Transmission Date: 20110411
  Serious: Yes (Hospitalization)
  Sender: FDA-Public Use
  Company Number: US-ROCHE-731934

PATIENT
  Age: 86 Year
  Sex: Male
  Weight: 88.5 kg

DRUGS (1)
  1. CAPECITABINE [Suspect]
     Dosage: ROUTE BY MOUTH
     Route: 048
     Dates: end: 20100818

REACTIONS (6)
  - DELUSION [None]
  - DIARRHOEA [None]
  - DYSPNOEA [None]
  - FEELING ABNORMAL [None]
  - PAIN [None]
  - VOMITING [None]
